FAERS Safety Report 7847814 (Version 2)
Quarter: 2013Q3

REPORT INFORMATION
  Report Type: Spontaneous
  Country: CA (occurrence: CA)
  Receive Date: 20110309
  Receipt Date: 20130903
  Transmission Date: 20140515
  Serious: Yes (Hospitalization, Other)
  Sender: FDA-Public Use
  Company Number: CA-ROCHE-763274

PATIENT
  Age: 7 Year
  Sex: Male
  Weight: 23 kg

DRUGS (20)
  1. KYTRIL [Suspect]
     Indication: PRODUCT USED FOR UNKNOWN INDICATION
     Route: 042
  2. KYTRIL [Suspect]
     Route: 042
  3. ONDANSETRON [Suspect]
     Indication: PRODUCT USED FOR UNKNOWN INDICATION
     Route: 048
  4. ONDANSETRON [Suspect]
     Route: 048
  5. ONDANSETRON [Suspect]
     Route: 048
  6. ETOPOSIDE [Concomitant]
     Route: 042
  7. HYDROMORPH CONTIN [Concomitant]
     Route: 048
  8. HYDROXYZINE [Concomitant]
     Route: 048
  9. IFOSFAMIDE [Concomitant]
     Dosage: FORM: POWDER FOR IV SOLUTION
     Route: 042
  10. LORAZEPAM [Concomitant]
     Route: 048
  11. LORAZEPAM [Concomitant]
     Route: 042
  12. MESNA [Concomitant]
     Route: 042
  13. SENOKOT [Concomitant]
  14. CEFUROXIME [Concomitant]
  15. DIMENHYDRINATE [Concomitant]
  16. RANITIDINE [Concomitant]
     Route: 048
  17. BISACODYL [Concomitant]
     Route: 048
  18. DEXAMETHASONE [Concomitant]
     Route: 065
  19. MORPHINE [Concomitant]
     Route: 065
  20. VANCOMYCIN [Concomitant]
     Route: 065

REACTIONS (7)
  - Movement disorder [Recovered/Resolved]
  - Protrusion tongue [Recovered/Resolved]
  - Tardive dyskinesia [Recovered/Resolved]
  - Excessive eye blinking [Recovered/Resolved]
  - Myoclonus [Recovered/Resolved]
  - Tic [Recovered/Resolved]
  - Trismus [Recovered/Resolved]
